FAERS Safety Report 9196251 (Version 3)
Quarter: 2013Q2

REPORT INFORMATION
  Report Type: Spontaneous
  Country: JP (occurrence: JP)
  Receive Date: 20130328
  Receipt Date: 20130430
  Transmission Date: 20140414
  Serious: Yes (Hospitalization, Other)
  Sender: FDA-Public Use
  Company Number: JP-PFIZER INC-2013095175

PATIENT
  Age: 24 Year
  Sex: Male
  Weight: 49.2 kg

DRUGS (1)
  1. LYRICA [Suspect]
     Indication: NECK PAIN
     Dosage: 75 MG, 2X/DAY
     Route: 048
     Dates: start: 20130319, end: 20130321

REACTIONS (6)
  - Hallucination [Unknown]
  - Confusional state [Unknown]
  - Agitation [Unknown]
  - Hallucination, auditory [Unknown]
  - Schizophreniform disorder [Unknown]
  - Soliloquy [Unknown]
